FAERS Safety Report 6072421-5 (Version None)
Quarter: 2009Q1

REPORT INFORMATION
  Report Type: 
  Country: None (occurrence: None)
  Receive Date: 20090209
  Receipt Date: 20090209
  Transmission Date: 20090719
  Serious: No
  Sender: FDA-Public Use
  Company Number: None

PATIENT
  Age: 44 Year
  Sex: Male
  Weight: 136.0791 kg

DRUGS (1)
  1. ZICAM COLD REMEDY NASAL GEL MATTRIXX [Suspect]
     Indication: NASOPHARYNGITIS
     Dosage: 2 SQUIRTS 3X DAILY NASAL
     Route: 045
     Dates: start: 20081207, end: 20081208

REACTIONS (3)
  - ANOSMIA [None]
  - IRRITABILITY [None]
  - NASAL DISCOMFORT [None]
